FAERS Safety Report 10404632 (Version 1)
Quarter: 2014Q2

REPORT INFORMATION
  Report Type: Spontaneous
  Country: US (occurrence: None)
  Receive Date: 20140530
  Receipt Date: 20140530
  Transmission Date: 20141212
  Serious: Yes (Hospitalization)
  Sender: FDA-Public Use
  Company Number: SP07294

PATIENT
  Sex: Male

DRUGS (1)
  1. RELISTOR [Suspect]
     Indication: CONSTIPATION
     Route: 058

REACTIONS (4)
  - Drug withdrawal syndrome [None]
  - Vomiting [None]
  - Diarrhoea [None]
  - Pain [None]
